FAERS Safety Report 21481446 (Version 2)
Quarter: 2023Q1

REPORT INFORMATION
  Report Type: Report from Study
  Country: US (occurrence: US)
  Receive Date: 20221019
  Receipt Date: 20230109
  Transmission Date: 20230417
  Serious: Yes (Hospitalization, Other)
  Sender: FDA-Public Use
  Company Number: US-ABBVIE-4165210

PATIENT
  Age: 59 Year
  Sex: Female
  Weight: 72.574 kg

DRUGS (13)
  1. HUMIRA [Suspect]
     Active Substance: ADALIMUMAB
     Indication: Rheumatoid arthritis
     Dosage: START DATE: -MAR-2022 TO -APR-2022
     Route: 058
     Dates: start: 2022
  2. HUMIRA [Suspect]
     Active Substance: ADALIMUMAB
     Route: 058
  3. PEPCID [Concomitant]
     Active Substance: FAMOTIDINE
     Indication: Gastrooesophageal reflux disease
  4. LEVOTHYROXINE [Concomitant]
     Active Substance: LEVOTHYROXINE
     Indication: Autoimmune thyroiditis
  5. METHOTREXATE [Concomitant]
     Active Substance: METHOTREXATE
     Indication: Rheumatoid arthritis
  6. HYDROXYCHLOROQUINE [Concomitant]
     Active Substance: HYDROXYCHLOROQUINE
     Indication: Rheumatoid arthritis
  7. HYDROCHLOROTHIAZIDE [Concomitant]
     Active Substance: HYDROCHLOROTHIAZIDE
     Indication: Swelling
  8. VITAMIN D [Concomitant]
     Active Substance: VITAMIN D NOS
     Indication: Vitamin D decreased
  9. ZYRTEC [Concomitant]
     Active Substance: CETIRIZINE HYDROCHLORIDE
     Indication: Rhinitis allergic
  10. FOLATE SODIUM [Concomitant]
     Active Substance: FOLATE SODIUM
     Indication: Rheumatoid arthritis
  11. ATORVASTATIN [Concomitant]
     Active Substance: ATORVASTATIN
     Indication: Blood cholesterol
  12. METFORMIN [Concomitant]
     Active Substance: METFORMIN HYDROCHLORIDE
     Indication: Glucose tolerance impaired
  13. BETAMETHASONE [Suspect]
     Active Substance: BETAMETHASONE
     Indication: Bursitis
     Dosage: UNKNOWN MANUFACTURER
     Route: 065
     Dates: start: 20220810, end: 20220810

REACTIONS (7)
  - Sinus tachycardia [Not Recovered/Not Resolved]
  - Atrial fibrillation [Recovered/Resolved]
  - Bursitis [Recovered/Resolved]
  - Nasal congestion [Recovered/Resolved]
  - COVID-19 [Recovered/Resolved]
  - Blood thyroid stimulating hormone decreased [Recovering/Resolving]
  - Adverse drug reaction [Unknown]

NARRATIVE: CASE EVENT DATE: 20220801
